FAERS Safety Report 8900608 (Version 1)
Quarter: 2012Q4

REPORT INFORMATION
  Report Type: 
  Country: US (occurrence: US)
  Receive Date: 20121109
  Receipt Date: 20121109
  Transmission Date: 20130627
  Serious: Yes (Hospitalization, Other)
  Sender: FDA-Public Use
  Company Number: US-ELI_LILLY_AND_COMPANY-US201007001780

PATIENT
  Sex: Female

DRUGS (19)
  1. FORTEO [Suspect]
     Indication: OSTEOPOROSIS
     Dosage: 20 ug, daily (1/D)
     Route: 065
  2. FORTEO [Suspect]
     Dosage: 20 ug, daily (1/D)
  3. FORTEO [Suspect]
     Dosage: 20 ug, qd
     Dates: start: 2004
  4. MIDODRINE [Concomitant]
     Dosage: UNK, 3/D
  5. SPIRIVA [Concomitant]
     Dosage: UNK, 2/D
  6. PROTONIX [Concomitant]
     Dosage: UNK, 2/D
  7. DIAZEPAM [Concomitant]
     Dosage: 2.5 mg, 4/D
  8. BUFFERIN [Concomitant]
     Indication: HEADACHE
     Dosage: UNK, as needed
  9. BOTOX [Concomitant]
  10. XALATAN [Concomitant]
     Dosage: UNK, each evening
  11. SYNTHROID [Concomitant]
     Dosage: 0.025 UNK, daily (1/D)
  12. ADVAIR [Concomitant]
     Dosage: UNK, daily (1/D)
  13. LEXAPRO [Concomitant]
     Dosage: 10 mg, daily (1/D)
  14. PILOCARPOL [Concomitant]
     Dosage: UNK, 2/D
  15. IPRATROPIUM [Concomitant]
     Dosage: UNK, daily (1/D)
  16. FENTANYL [Concomitant]
     Indication: PAIN
     Dosage: 600 mg, daily (1/D)
  17. FENTANYL [Concomitant]
     Dosage: 25 mg, every 3days
     Route: 062
  18. MULTIVITAMIN [Concomitant]
  19. OMEGA 3 [Concomitant]

REACTIONS (7)
  - Non-Hodgkin^s lymphoma [Unknown]
  - Pneumonia [Recovered/Resolved]
  - Dizziness [Recovering/Resolving]
  - Constipation [Unknown]
  - Balance disorder [Recovering/Resolving]
  - Faeces hard [Unknown]
  - Fracture [Unknown]
